FAERS Safety Report 6935333-8 (Version None)
Quarter: 2010Q3

REPORT INFORMATION
  Report Type: 
  Country: None (occurrence: None)
  Receive Date: 20100823
  Receipt Date: 20100719
  Transmission Date: 20110219
  Serious: Yes (Hospitalization)
  Sender: FDA-Public Use
  Company Number: US-BAYER-201025563NA

PATIENT
  Age: 19 Year
  Sex: Female
  Weight: 56 kg

DRUGS (4)
  1. YAZ [Suspect]
     Indication: CONTRACEPTION
     Route: 048
     Dates: start: 20071001, end: 20100101
  2. EXCEDRIN (MIGRAINE) [Concomitant]
     Dates: end: 20090501
  3. PROAIR HFA [Concomitant]
     Dates: end: 20090401
  4. ZYRTEC [Concomitant]
     Dates: start: 20010101

REACTIONS (3)
  - ABDOMINAL PAIN UPPER [None]
  - BILIARY DYSKINESIA [None]
  - CHOLECYSTITIS CHRONIC [None]
